FAERS Safety Report 9789842 (Version 1)
Quarter: 2013Q4

REPORT INFORMATION
  Report Type: Spontaneous
  Country: US (occurrence: None)
  Receive Date: 20131230
  Receipt Date: 20131230
  Transmission Date: 20140711
  Serious: Yes (Life-Threatening)
  Sender: FDA-Public Use
  Company Number: None

PATIENT
  Age: 27 Year
  Sex: Female
  Weight: 75 kg

DRUGS (1)
  1. CHAMPIX [Suspect]
     Dosage: 1 EV 12 HOURS TWICE DAILY TAKEN BY MOUTH
     Route: 048

REACTIONS (3)
  - Suicidal behaviour [None]
  - Impulsive behaviour [None]
  - Aggression [None]
